FAERS Safety Report 24025918 (Version 1)
Quarter: 2024Q2

REPORT INFORMATION
  Report Type: Spontaneous
  Country: JP (occurrence: JP)
  Receive Date: 20240628
  Receipt Date: 20240628
  Transmission Date: 20240716
  Serious: No
  Sender: FDA-Public Use
  Company Number: JP-CHUGAI-2023042375

PATIENT
  Age: 64 Year
  Sex: Male

DRUGS (1)
  1. ALECENSA [Suspect]
     Active Substance: ALECTINIB HYDROCHLORIDE
     Indication: Lung neoplasm malignant
     Route: 048
     Dates: start: 2019, end: 20211019

REACTIONS (17)
  - Musculoskeletal stiffness [Unknown]
  - Fall [Unknown]
  - Pain [Unknown]
  - Erythema [Unknown]
  - Dermatitis [Unknown]
  - Skin erosion [Unknown]
  - Melanoderma [Unknown]
  - Ichthyosis acquired [Unknown]
  - Haemorrhage subcutaneous [Unknown]
  - Dyspnoea [Unknown]
  - Vital capacity decreased [Unknown]
  - Chest pain [Unknown]
  - Malaise [Unknown]
  - Myalgia [Unknown]
  - Arthralgia [Unknown]
  - Somnolence [Unknown]
  - Pruritus [Unknown]

NARRATIVE: CASE EVENT DATE: 20190101
